FAERS Safety Report 4869672-1 (Version None)
Quarter: 2005Q4

REPORT INFORMATION
  Report Type: 
  Country: None (occurrence: None)
  Receive Date: 20051223
  Receipt Date: 20051213
  Transmission Date: 20060501
  Serious: Yes (Life-Threatening, Other)
  Sender: FDA-Public Use
  Company Number: HQWYE001114DEC05

PATIENT
  Age: 12 Year
  Sex: Male

DRUGS (11)
  1. RAPAMUNE [Suspect]
     Indication: IMMUNOSUPPRESSION
     Dosage: 3 MG 1X PER 1 DAY, ORAL
     Route: 048
  2. RAPAMUNE [Suspect]
     Indication: PROPHYLAXIS AGAINST TRANSPLANT REJECTION
     Dosage: 3 MG 1X PER 1 DAY, ORAL
     Route: 048
  3. PREDNISONE [Concomitant]
  4. CYCLOSPORINE [Concomitant]
  5. PRAZOSIN GITS [Concomitant]
  6. CLONIDINE [Concomitant]
  7. HYDRALAZINE HCL [Concomitant]
  8. GANCICLOVIR SODIUM [Concomitant]
  9. SULFAMETHOXAZOLE + TRIMETHOPRIM [Concomitant]
  10. NYSTATIN [Concomitant]
  11. OMEPRAZOLE [Concomitant]

REACTIONS (2)
  - COMPLICATIONS OF TRANSPLANT SURGERY [None]
  - URETERIC STENOSIS [None]
